FAERS Safety Report 18076862 (Version 1)
Quarter: 2020Q3

REPORT INFORMATION
  Report Type: Spontaneous
  Country: NZ (occurrence: NZ)
  Receive Date: 20200728
  Receipt Date: 20200728
  Transmission Date: 20201103
  Serious: Yes (Hospitalization, Other)
  Sender: FDA-Public Use
  Company Number: NZ-ROCHE-2642607

PATIENT
  Age: 36 Year
  Sex: Male

DRUGS (1)
  1. AVASTIN [Suspect]
     Active Substance: BEVACIZUMAB
     Indication: GLIOBLASTOMA
     Route: 065
     Dates: start: 2020

REACTIONS (9)
  - Neoplasm [Unknown]
  - Pain [Unknown]
  - General physical health deterioration [Unknown]
  - Monoplegia [Unknown]
  - Ill-defined disorder [Unknown]
  - Post-traumatic epilepsy [Unknown]
  - Depression [Unknown]
  - Confusional state [Unknown]
  - Hypoaesthesia [Unknown]

NARRATIVE: CASE EVENT DATE: 202007
